FAERS Safety Report 13523162 (Version 4)
Quarter: 2017Q3

REPORT INFORMATION
  Report Type: Spontaneous
  Country: US (occurrence: US)
  Receive Date: 20170508
  Receipt Date: 20170706
  Transmission Date: 20171127
  Serious: Yes (Life-Threatening, Other)
  Sender: FDA-Public Use
  Company Number: US-PFIZER INC-2017201136

PATIENT
  Age: 37 Year
  Sex: Female

DRUGS (8)
  1. ETOPOSIDE. [Concomitant]
     Active Substance: ETOPOSIDE
     Indication: CHORIOCARCINOMA
     Dosage: UNK
  2. BLEOMYCIN SULFATE [Concomitant]
     Active Substance: BLEOMYCIN SULFATE
     Indication: METASTASES TO LIVER
  3. CISPLATIN. [Suspect]
     Active Substance: CISPLATIN
     Indication: METASTATIC CHORIOCARCINOMA
     Dosage: COMPLETED 3 MONTHS OF TREATMENT PRIOR TO RECEIVING ONE MORE CYCLE
  4. PACLITAXEL. [Suspect]
     Active Substance: PACLITAXEL
     Indication: METASTATIC CHORIOCARCINOMA
     Dosage: ONE CYCLE
  5. IFOSFAMIDE. [Suspect]
     Active Substance: IFOSFAMIDE
     Indication: METASTATIC CHORIOCARCINOMA
     Dosage: ONE CYCLE
  6. ETOPOSIDE. [Concomitant]
     Active Substance: ETOPOSIDE
     Indication: METASTASES TO LIVER
  7. MESNA. [Suspect]
     Active Substance: MESNA
     Indication: METASTATIC CHORIOCARCINOMA
     Dosage: ONE CYCLE
  8. BLEOMYCIN SULFATE [Concomitant]
     Active Substance: BLEOMYCIN SULFATE
     Indication: CHORIOCARCINOMA
     Dosage: UNK

REACTIONS (3)
  - Acute kidney injury [Unknown]
  - Renal tubular necrosis [Unknown]
  - Febrile neutropenia [Unknown]
